FAERS Safety Report 11716304 (Version 5)
Quarter: 2016Q1

REPORT INFORMATION
  Report Type: Report from Study
  Country: ES (occurrence: ES)
  Receive Date: 20151109
  Receipt Date: 20160129
  Transmission Date: 20160525
  Serious: Yes (Other)
  Sender: FDA-Public Use
  Company Number: ES-ABBVIE-15P-144-1493066-00

PATIENT
  Age: 79 Year
  Sex: Female

DRUGS (4)
  1. ESOMEPRAZOL [Suspect]
     Active Substance: ESOMEPRAZOLE
     Indication: JOINT SWELLING
     Route: 065
  2. SINEMET [Suspect]
     Active Substance: CARBIDOPA\LEVODOPA
     Indication: PRODUCT USED FOR UNKNOWN INDICATION
     Route: 065
  3. DUODOPA [Suspect]
     Active Substance: CARBIDOPA\LEVODOPA
     Indication: PARKINSON^S DISEASE
     Dosage: MD: 6.2; CD: 2.2 AND ED: 2.0
     Route: 050
     Dates: start: 201506
  4. IBUPROFEN. [Suspect]
     Active Substance: IBUPROFEN
     Indication: JOINT SWELLING
     Route: 065

REACTIONS (12)
  - Arthropathy [Not Recovered/Not Resolved]
  - Freezing phenomenon [Recovering/Resolving]
  - Joint swelling [Recovering/Resolving]
  - Chorea [Unknown]
  - Fatigue [Unknown]
  - Abasia [Not Recovered/Not Resolved]
  - Dyskinesia [Not Recovered/Not Resolved]
  - Parkinson^s disease [Unknown]
  - Synovial rupture [Unknown]
  - Musculoskeletal stiffness [Recovering/Resolving]
  - Hypokinesia [Unknown]
  - Drug ineffective [Unknown]

NARRATIVE: CASE EVENT DATE: 201510
